FAERS Safety Report 13430337 (Version 1)
Quarter: 2017Q2

REPORT INFORMATION
  Report Type: Report from Study
  Country: DE (occurrence: DE)
  Receive Date: 20170412
  Receipt Date: 20170412
  Transmission Date: 20170912
  Serious: Yes (Hospitalization)
  Sender: FDA-Public Use
  Company Number: DE-JNJFOC-20160606445

PATIENT
  Age: 81 Year
  Sex: Male
  Weight: 91 kg

DRUGS (25)
  1. TRIAMTEREN [Concomitant]
     Active Substance: TRIAMTERENE
     Route: 048
  2. TRIAMTEREN [Concomitant]
     Active Substance: TRIAMTERENE
     Route: 048
  3. HCT [Concomitant]
     Active Substance: HYDROCHLOROTHIAZIDE
     Dosage: INTERVAL: IN THE MORNING
     Route: 048
  4. METOPROLOL [Concomitant]
     Route: 048
  5. BRILINTA [Concomitant]
     Active Substance: TICAGRELOR
     Route: 048
  6. ISOSORBIDE [Concomitant]
     Dosage: INTERVAL: BEFORE MEALS
     Route: 048
  7. NORVASC [Concomitant]
     Route: 048
  8. ACETYLSALICYLIC ACID [Concomitant]
     Active Substance: ASPIRIN
     Route: 048
  9. GLIMEPIRIDE [Concomitant]
     Route: 065
     Dates: start: 2014, end: 20160604
  10. SORTIS [Concomitant]
     Active Substance: ATORVASTATIN
     Dosage: INTERVAL: IN THE MORNING
     Route: 048
  11. TRIAMTEREN [Concomitant]
     Active Substance: TRIAMTERENE
     Route: 048
  12. ALLOPURINOL [Concomitant]
     Route: 048
  13. AMOXICILLIN [Concomitant]
     Route: 048
  14. BRILIQUE [Concomitant]
     Active Substance: TICAGRELOR
     Route: 048
  15. GLIMEPIRIDE [Concomitant]
     Route: 065
     Dates: start: 2007, end: 2014
  16. SORTIS [Concomitant]
     Active Substance: ATORVASTATIN
     Route: 048
  17. CARDULAR PP [Concomitant]
     Active Substance: DOXAZOSIN MESYLATE
     Route: 048
  18. TOREM [Concomitant]
     Active Substance: TORSEMIDE
     Dosage: INTERVAL: IN THE MORNING
     Route: 048
  19. PLAVIX [Concomitant]
     Dosage: INTERVAL: IN THE MORNING
     Route: 048
  20. PLACEBO [Suspect]
     Route: 048
  21. EFIENT [Concomitant]
     Active Substance: PRASUGREL HYDROCHLORIDE
     Indication: CARDIAC DISORDER
     Dosage: INTERVAL: IN THE MORNING
     Route: 048
  22. RAMIPRIL [Concomitant]
     Route: 048
  23. PANTOPRAZOL [Concomitant]
     Active Substance: PANTOPRAZOLE SODIUM
     Route: 048
  24. CLARITHROMYCIN [Concomitant]
     Route: 048
  25. FERRO-SANOL DUODENAL [Concomitant]
     Active Substance: FERROUS GLYCINE SULFATE
     Route: 048

REACTIONS (1)
  - Coronary artery restenosis [Recovered/Resolved]

NARRATIVE: CASE EVENT DATE: 20160505
